FAERS Safety Report 19281489 (Version 1)
Quarter: 2021Q2

REPORT INFORMATION
  Report Type: Spontaneous
  Country: BR (occurrence: BR)
  Receive Date: 20210521
  Receipt Date: 20210521
  Transmission Date: 20210717
  Serious: Yes (Hospitalization)
  Sender: FDA-Public Use
  Company Number: BR-NOVOPROD-813369

PATIENT
  Age: 5 Year
  Weight: 25.7 kg

DRUGS (7)
  1. TRESIBA [Suspect]
     Active Substance: INSULIN DEGLUDEC
     Indication: PRODUCT USED FOR UNKNOWN INDICATION
     Dosage: 6 IU, QD(.27 UI / KG / DAY)
     Route: 065
  2. FIASP [Suspect]
     Active Substance: INSULIN ASPART
     Dosage: FIASP: COFFEE 1: 15G CCHO, REMAINING 1: 20G CCHO
     Route: 065
  3. FIASP [Suspect]
     Active Substance: INSULIN ASPART
     Dosage: FIASP 1: 7 G
     Route: 065
  4. TRESIBA [Suspect]
     Active Substance: INSULIN DEGLUDEC
     Dosage: 6IU(0.26 WM / KG / DAY
     Route: 065
  5. FIASP [Suspect]
     Active Substance: INSULIN ASPART
     Dosage: UNK
     Route: 065
     Dates: start: 20200712
  6. TRESIBA [Suspect]
     Active Substance: INSULIN DEGLUDEC
     Dosage: 9 IU (0.38 IU / KG / DAY)
     Route: 065
  7. LISPRO INSULIN [Concomitant]
     Active Substance: INSULIN LISPRO
     Dosage: UNK(CCHO 1: 15 COFFEE AND 1:20, TABLE: 250?330)
     Route: 065

REACTIONS (3)
  - Blood glucose increased [Unknown]
  - Diabetic ketoacidosis [Recovered/Resolved]
  - Hypoglycaemia [Unknown]

NARRATIVE: CASE EVENT DATE: 202008
